FAERS Safety Report 14279545 (Version 1)
Quarter: 2017Q4

REPORT INFORMATION
  Report Type: Spontaneous
  Country: US (occurrence: US)
  Receive Date: 20171213
  Receipt Date: 20171213
  Transmission Date: 20180321
  Serious: No
  Sender: FDA-Public Use
  Company Number: US-TEVA-2017-US-833073

PATIENT
  Age: 40 Year
  Sex: Female

DRUGS (4)
  1. VITAMIN-D3 [Concomitant]
     Route: 065
  2. IRON [Concomitant]
     Active Substance: IRON
     Route: 065
  3. COPAXONE [Suspect]
     Active Substance: GLATIRAMER ACETATE
     Indication: MULTIPLE SCLEROSIS
     Route: 058
     Dates: start: 20170627
  4. COMPLEX [Concomitant]
     Route: 065

REACTIONS (2)
  - Injection site erythema [Unknown]
  - Injection site pruritus [Unknown]
